FAERS Safety Report 6160763-4 (Version None)
Quarter: 2009Q2

REPORT INFORMATION
  Report Type: 
  Country: None (occurrence: None)
  Receive Date: 20090416
  Receipt Date: 20090401
  Transmission Date: 20091009
  Serious: Yes (Death, Hospitalization)
  Sender: FDA-Public Use
  Company Number: 2008001836

PATIENT
  Age: 62 Year
  Weight: 45.5 kg

DRUGS (9)
  1. ERLOTINIB (ERLOTINIB) (TABLET) (ERLOTINIB) [Suspect]
     Indication: NON-SMALL CELL LUNG CANCER
     Dosage: 150 MG, QD, ORAL
     Route: 048
     Dates: start: 20080702, end: 20080723
  2. NIAXIN [Concomitant]
  3. RABEPRAZOLE SODIUM [Concomitant]
  4. ATARAX [Concomitant]
  5. CLOBETASOL PROPIONATE [Concomitant]
  6. NEOMALLERMIN-TR [Concomitant]
  7. EURAX [Concomitant]
  8. SPIRIVA [Concomitant]
  9. EURODIN (ESTAZOLAM) [Concomitant]

REACTIONS (6)
  - ACNE [None]
  - CORNEAL PERFORATION [None]
  - DIARRHOEA [None]
  - LUNG ADENOCARCINOMA [None]
  - MALIGNANT NEOPLASM PROGRESSION [None]
  - ULCERATIVE KERATITIS [None]
